FAERS Safety Report 10216657 (Version 2)
Quarter: 2015Q2

REPORT INFORMATION
  Report Type: Spontaneous
  Country: US (occurrence: US)
  Receive Date: 20140604
  Receipt Date: 20150622
  Transmission Date: 20150821
  Serious: No
  Sender: FDA-Public Use
  Company Number: US-PFIZER INC-2014151455

PATIENT
  Age: 41 Year
  Sex: Male
  Weight: 97.51 kg

DRUGS (6)
  1. LEVOTHYROXIN [Concomitant]
     Active Substance: LEVOTHYROXINE
     Dosage: 300 UG, UNK
  2. PREDNISONE. [Concomitant]
     Active Substance: PREDNISONE
     Dosage: 1 MG, UNK
  3. PILOCARPINE [Concomitant]
     Active Substance: PILOCARPINE
     Dosage: 5 MG, UNK
  4. XELJANZ [Suspect]
     Active Substance: TOFACITINIB CITRATE
     Dosage: 5 MG, 1X/DAY
     Route: 048
  5. XELJANZ [Suspect]
     Active Substance: TOFACITINIB CITRATE
     Indication: RHEUMATOID ARTHRITIS
     Dosage: 5 MG, 2X/DAY
     Route: 048
     Dates: start: 2013
  6. NAPRELAN [Concomitant]
     Active Substance: NAPROXEN SODIUM
     Dosage: 375 MG, UNK

REACTIONS (5)
  - Back disorder [Unknown]
  - Nasal congestion [Unknown]
  - Intervertebral disc protrusion [Unknown]
  - Musculoskeletal stiffness [Unknown]
  - Infection [Unknown]

NARRATIVE: CASE EVENT DATE: 2015
